FAERS Safety Report 8018472-2 (Version None)
Quarter: 2012Q1

REPORT INFORMATION
  Report Type: 
  Country: None (occurrence: None)
  Receive Date: 20120103
  Receipt Date: 20111228
  Transmission Date: 20120608
  Serious: Yes (Hospitalization, Disabling, Other)
  Sender: FDA-Public Use
  Company Number: JP-ASTELLAS-2011JP007987

PATIENT
  Sex: Male
  Weight: 81 kg

DRUGS (4)
  1. METHOTREXATE [Concomitant]
     Indication: PROPHYLAXIS AGAINST GRAFT VERSUS HOST DISEASE
     Route: 065
  2. SULFAMETHOXAZOLE AND TRIMETHOPRIM [Concomitant]
     Dosage: 2 DF, 3XWEEKLY
     Route: 048
  3. PROGRAF [Suspect]
     Dosage: UNK
     Route: 048
     Dates: start: 20100210, end: 20100213
  4. PROGRAF [Suspect]
     Indication: PROPHYLAXIS AGAINST GRAFT VERSUS HOST DISEASE
     Dosage: 3.5 MG, BID
     Route: 065
     Dates: start: 20090818, end: 20100209

REACTIONS (3)
  - THROMBOTIC MICROANGIOPATHY [None]
  - GRAFT VERSUS HOST DISEASE [None]
  - DRUG INEFFECTIVE [None]
